FAERS Safety Report 8157475-4 (Version None)
Quarter: 2012Q1

REPORT INFORMATION
  Report Type: 
  Country: None (occurrence: None)
  Receive Date: 20120222
  Receipt Date: 20120213
  Transmission Date: 20120608
  Serious: Yes (Hospitalization)
  Sender: FDA-Public Use
  Company Number: BR-ASTRAZENECA-2011SE56445

PATIENT
  Age: 52 Year
  Sex: Female
  Weight: 70 kg

DRUGS (9)
  1. CRESTOR [Suspect]
     Indication: HYPERCHOLESTEROLAEMIA
     Route: 048
     Dates: start: 20110401
  2. PANTOPRAZOLE [Concomitant]
     Indication: GASTRITIS PROPHYLAXIS
     Route: 048
  3. CRESTOR [Suspect]
     Route: 048
     Dates: start: 20110401, end: 20110816
  4. SOMALGIN [Concomitant]
     Route: 048
  5. VASTAREL [Concomitant]
     Route: 048
  6. MONOCORDIL 50 MG [Concomitant]
     Route: 048
  7. CLOPIDOGREL [Concomitant]
     Route: 048
  8. CRESTOR [Suspect]
     Route: 048
  9. CRESTOR [Suspect]
     Route: 048

REACTIONS (1)
  - ARTERIAL OCCLUSIVE DISEASE [None]
